FAERS Safety Report 20559703 (Version 3)
Quarter: 2024Q4

REPORT INFORMATION
  Report Type: Report from Study
  Country: US (occurrence: US)
  Receive Date: 20220307
  Receipt Date: 20241205
  Transmission Date: 20250114
  Serious: Yes (Other)
  Sender: NOVARTIS
  Company Number: US-NOVARTISTESTPH-NVSC2022US052627

PATIENT
  Age: 24 Year
  Sex: Female

DRUGS (19)
  1. KESIMPTA [Suspect]
     Active Substance: OFATUMUMAB
     Indication: Multiple sclerosis
     Dosage: 20 MG, EVERY 28 DAYS
     Route: 058
  2. KESIMPTA [Suspect]
     Active Substance: OFATUMUMAB
     Indication: Relapsing-remitting multiple sclerosis
  3. MELATONIN [Concomitant]
     Active Substance: MELATONIN
     Indication: Product used for unknown indication
     Dosage: UNK
     Route: 065
  4. VITAMIN D3 [Concomitant]
     Active Substance: CHOLECALCIFEROL
     Indication: Product used for unknown indication
     Dosage: UNK
     Route: 065
  5. VITAMIN B12 [Concomitant]
     Active Substance: CYANOCOBALAMIN
     Indication: Product used for unknown indication
     Dosage: UNK
     Route: 065
  6. CYCLOBENZAPRINE HYDROCHLORIDE [Concomitant]
     Active Substance: CYCLOBENZAPRINE HYDROCHLORIDE
     Indication: Product used for unknown indication
     Dosage: UNK
     Route: 065
  7. ACETAMINOPHEN [Concomitant]
     Active Substance: ACETAMINOPHEN
     Indication: Pain
     Dosage: 1 DOSAGE FORM, PRN (TAKE 1 CAPSULE BY MOUTH EVERY 4 HOURS AS NEEDED) (3 REFILLS)
     Route: 048
     Dates: start: 20220421, end: 20230419
  8. ALBUTEROL [Concomitant]
     Active Substance: ALBUTEROL
     Indication: Wheezing
     Dosage: UNK, PRN (ALBUTEROL 108 (90 BASE) MCG/ACT AEROSOL SOLUTION, TAKE 2 PUFFS BY INHALATION EVERY 4 HOURS
     Route: 055
     Dates: start: 20220727, end: 20230516
  9. ALBUTEROL [Concomitant]
     Active Substance: ALBUTEROL
     Indication: Cough
  10. CHLORHEXIDINE [Concomitant]
     Active Substance: CHLORHEXIDINE
     Indication: Product used for unknown indication
     Dosage: 15 ML, BID (15 ML BY SWISH + SPIT ROUTE 2 TIMES DAILY) (2 REFILLS)
     Route: 065
     Dates: start: 20220907, end: 20230115
  11. ALBUTEROL SULFATE [Concomitant]
     Active Substance: ALBUTEROL SULFATE
     Indication: Product used for unknown indication
     Dosage: 3 ML, QID (3 ML BY NEBULIZATION ROUTE 4 TIMES DAILY FOR 30 DAYS) (3 REFILLS)
     Route: 065
     Dates: start: 20191017, end: 20230825
  12. VITAMIN D [Concomitant]
     Active Substance: VITAMIN D NOS
     Indication: Product used for unknown indication
     Dosage: 1 DOSAGE FORM, QD
     Route: 048
     Dates: start: 20210910
  13. CYANOCOBALAMIN [Concomitant]
     Active Substance: CYANOCOBALAMIN
     Indication: Product used for unknown indication
     Dosage: 1 DOSAGE FORM, QD
     Route: 048
     Dates: start: 20210910
  14. FERROUS SULFATE [Concomitant]
     Active Substance: FERROUS SULFATE
     Indication: Product used for unknown indication
     Dosage: 1 DOSAGE FORM, QD (3 REFILLS)
     Route: 048
     Dates: start: 20221130, end: 20240419
  15. ONDANSETRON HYDROCHLORIDE [Concomitant]
     Active Substance: ONDANSETRON HYDROCHLORIDE
     Indication: Nausea
     Dosage: 1 DOSAGE FORM, Q8H (AS NEEDED, 1ST LINE) (1 REFILL)
     Route: 048
     Dates: start: 20221212, end: 20230212
  16. POLYETHYLENE GLYCOL [Concomitant]
     Active Substance: POLYETHYLENE GLYCOL
     Indication: Product used for unknown indication
     Dosage: 1 DOSAGE FORM, QD (1 PACKET, DISSOLVE IN 4-8 OZ OF LIQUID) (3 REFILLS)
     Route: 048
     Dates: start: 20220810, end: 20230516
  17. IBUPROFEN [Concomitant]
     Active Substance: IBUPROFEN
     Indication: Pain
     Dosage: 1 DOSAGE FORM, Q8H (EVERY 8 HOURS AS NEEDED)
     Route: 048
  18. MAGNESIUM OXIDE [Concomitant]
     Active Substance: MAGNESIUM OXIDE
     Indication: Product used for unknown indication
     Dosage: 400 MG, BID
     Route: 048
  19. OMEPRAZOLE [Concomitant]
     Active Substance: OMEPRAZOLE
     Indication: Product used for unknown indication
     Dosage: 1 DOSAGE FORM, QD (3 REFILLS)
     Route: 048

REACTIONS (26)
  - Myelopathy [Unknown]
  - Multiple sclerosis relapse [Unknown]
  - Oedema [Unknown]
  - Fatigue [Unknown]
  - Muscle spasms [Unknown]
  - Hypoaesthesia [Recovering/Resolving]
  - Muscular weakness [Unknown]
  - Hot flush [Unknown]
  - Balance disorder [Unknown]
  - Micturition urgency [Unknown]
  - Urinary incontinence [Unknown]
  - Musculoskeletal stiffness [Unknown]
  - Headache [Unknown]
  - Tooth disorder [Unknown]
  - White blood cell count increased [Unknown]
  - Red blood cell count decreased [Unknown]
  - Haemoglobin decreased [Unknown]
  - Haematocrit decreased [Unknown]
  - Neutrophil count increased [Unknown]
  - Lymphocyte count decreased [Unknown]
  - Monocyte count increased [Unknown]
  - Carbon dioxide decreased [Unknown]
  - Blood chloride increased [Unknown]
  - Blood urea nitrogen/creatinine ratio decreased [Unknown]
  - Blood albumin decreased [Unknown]
  - Blood alkaline phosphatase decreased [Unknown]

NARRATIVE: CASE EVENT DATE: 20210901
